FAERS Safety Report 7908741-6 (Version None)
Quarter: 2011Q4

REPORT INFORMATION
  Report Type: 
  Country: None (occurrence: None)
  Receive Date: 20111111
  Receipt Date: 20111108
  Transmission Date: 20120403
  Serious: Yes (Hospitalization, Other)
  Sender: FDA-Public Use
  Company Number: US-PFIZER INC-2011143817

PATIENT
  Sex: Male

DRUGS (1)
  1. CHANTIX [Suspect]
     Indication: SMOKING CESSATION THERAPY
     Dosage: 0.5MG AND 1MG PACKS
     Route: 048
     Dates: start: 20090429, end: 20100901

REACTIONS (3)
  - SUICIDAL IDEATION [None]
  - DEPRESSION [None]
  - ANXIETY [None]
